FAERS Safety Report 10187194 (Version 2)
Quarter: 2014Q2

REPORT INFORMATION
  Report Type: Report from Study
  Country: DE (occurrence: DE)
  Receive Date: 20140522
  Receipt Date: 20140522
  Transmission Date: 20141212
  Serious: Yes (Hospitalization)
  Sender: FDA-Public Use
  Company Number: DE-ABBVIE-14P-062-1207009-00

PATIENT
  Age: 60 Year
  Sex: Female
  Weight: 75 kg

DRUGS (4)
  1. HUMIRA [Suspect]
     Indication: RHEUMATOID ARTHRITIS
     Route: 058
     Dates: start: 201212, end: 20130801
  2. HUMIRA [Suspect]
     Route: 058
     Dates: start: 20130918, end: 20131227
  3. HUMIRA [Suspect]
     Route: 058
     Dates: start: 20140203
  4. RAMIPRIL [Concomitant]
     Indication: HYPERTENSION

REACTIONS (1)
  - Tendon rupture [Recovered/Resolved]
